FAERS Safety Report 18113497 (Version 1)
Quarter: 2020Q3

REPORT INFORMATION
  Report Type: Spontaneous
  Country: US (occurrence: US)
  Receive Date: 20200805
  Receipt Date: 20200805
  Transmission Date: 20201103
  Serious: No
  Sender: FDA-Public Use
  Company Number: US-SA-2020SA200225

PATIENT

DRUGS (2)
  1. XOLAIR [Concomitant]
     Active Substance: OMALIZUMAB
     Indication: URTICARIA CHOLINERGIC
  2. DUPIXENT [Suspect]
     Active Substance: DUPILUMAB
     Indication: URTICARIA CHOLINERGIC
     Dosage: UNK

REACTIONS (1)
  - Off label use [Unknown]
